FAERS Safety Report 20953552 (Version 2)
Quarter: 2022Q3

REPORT INFORMATION
  Report Type: Spontaneous
  Country: DE (occurrence: DE)
  Receive Date: 20220613
  Receipt Date: 20220812
  Transmission Date: 20221027
  Serious: Yes (Other)
  Sender: FDA-Public Use
  Company Number: DE-GILEAD-2022-0584954

PATIENT
  Age: 67 Year
  Sex: Female
  Weight: 46 kg

DRUGS (4)
  1. TRODELVY [Suspect]
     Active Substance: SACITUZUMAB GOVITECAN-HZIY
     Indication: Product used for unknown indication
     Route: 065
  2. LATANOPROST\TIMOLOL MALEATE [Concomitant]
     Active Substance: LATANOPROST\TIMOLOL MALEATE
  3. AZOPT [BRINZOLAMIDE] [Concomitant]
  4. PRIMIDONE [Concomitant]
     Active Substance: PRIMIDONE

REACTIONS (3)
  - Pulmonary toxicity [Unknown]
  - Lung infiltration [Not Recovered/Not Resolved]
  - Lung infiltration [Unknown]

NARRATIVE: CASE EVENT DATE: 20220103
